FAERS Safety Report 10097393 (Version 3)
Quarter: 2014Q2

REPORT INFORMATION
  Report Type: Report from Study
  Country: NL (occurrence: NL)
  Receive Date: 20140423
  Receipt Date: 20140602
  Transmission Date: 20141212
  Serious: Yes (Death, Hospitalization)
  Sender: FDA-Public Use
  Company Number: NL-BAXTER-2014BAX019198

PATIENT
  Age: 59 Year
  Sex: Male

DRUGS (22)
  1. KIOVIG, 100 MG/ML, OPLOSSING VOOR INFUSIE  (30 G/300 ML) [Suspect]
     Indication: CHRONIC INFLAMMATORY DEMYELINATING POLYRADICULONEUROPATHY
     Route: 042
     Dates: start: 20140408, end: 20140408
  2. KIOVIG, 100 MG/ML, OPLOSSING VOOR INFUSIE  (30 G/300 ML) [Suspect]
     Indication: OFF LABEL USE
     Route: 042
     Dates: start: 20140329, end: 20140329
  3. KIOVIG, 100 MG/ML, OPLOSSING VOOR INFUSIE  (30 G/300 ML) [Suspect]
     Route: 042
     Dates: start: 20140327, end: 20140327
  4. KIOVIG 100 MG/ML OPLOSSING VOOR INFUSIE (1 G/10 ML) [Suspect]
     Indication: CHRONIC INFLAMMATORY DEMYELINATING POLYRADICULONEUROPATHY
     Route: 042
     Dates: start: 20140408, end: 20140408
  5. KIOVIG 100 MG/ML OPLOSSING VOOR INFUSIE (1 G/10 ML) [Suspect]
     Indication: OFF LABEL USE
     Route: 042
     Dates: start: 20140329, end: 20140329
  6. KIOVIG 100 MG/ML OPLOSSING VOOR INFUSIE (1 G/10 ML) [Suspect]
     Route: 042
     Dates: start: 20140327, end: 20140327
  7. PRIVIGEN [Suspect]
     Indication: CHRONIC INFLAMMATORY DEMYELINATING POLYRADICULONEUROPATHY
     Dosage: SOMETIME DURING HOSPITALIZATION FROM 13FEB2014-19FEB2014
     Route: 065
  8. IMMUNOGLOBULIN [Suspect]
     Indication: PRODUCT USED FOR UNKNOWN INDICATION
     Route: 042
  9. DEXAMETHASONE [Concomitant]
     Indication: MUSCULAR WEAKNESS
     Route: 065
  10. CEFUROXIME [Concomitant]
     Indication: RESPIRATORY TRACT INFECTION
     Route: 065
  11. AUGMENTIN [Concomitant]
     Indication: RESPIRATORY TRACT INFECTION
     Route: 065
  12. ENALAPRIL [Concomitant]
     Indication: PRODUCT USED FOR UNKNOWN INDICATION
     Route: 065
  13. COTRIMOXAZOL [Concomitant]
     Indication: PRODUCT USED FOR UNKNOWN INDICATION
     Route: 065
  14. CALCIUM CARBONATE/VITAMIN D3 [Concomitant]
     Indication: PRODUCT USED FOR UNKNOWN INDICATION
     Dosage: 1-500 MG/800 IU TABLET PER DAY
     Route: 065
  15. TAMSULOSINE [Concomitant]
     Indication: PRODUCT USED FOR UNKNOWN INDICATION
     Route: 065
  16. METFORMINE [Concomitant]
     Indication: PRODUCT USED FOR UNKNOWN INDICATION
     Route: 065
  17. AMLODIPINE [Concomitant]
     Indication: PRODUCT USED FOR UNKNOWN INDICATION
     Route: 065
  18. MYCOPHENOLATE MOFETIL [Concomitant]
     Indication: PRODUCT USED FOR UNKNOWN INDICATION
     Route: 065
  19. ESOMEPRAZOLE [Concomitant]
     Indication: PRODUCT USED FOR UNKNOWN INDICATION
     Route: 065
  20. PREDNISOLONE [Concomitant]
     Indication: PRODUCT USED FOR UNKNOWN INDICATION
     Route: 065
  21. ALENDRONINE ACID [Concomitant]
     Indication: PRODUCT USED FOR UNKNOWN INDICATION
     Route: 065
  22. AMOXICLAV ACID [Concomitant]
     Indication: PRODUCT USED FOR UNKNOWN INDICATION
     Dosage: 500/125 MG IN ONE PIECE
     Route: 065

REACTIONS (7)
  - Renal failure [Fatal]
  - Depressed level of consciousness [Fatal]
  - Haemodynamic instability [Fatal]
  - Respiratory failure [Unknown]
  - Metabolic acidosis [Unknown]
  - Tubulointerstitial nephritis [Unknown]
  - Urinary tract infection [Unknown]
